FAERS Safety Report 25346469 (Version 1)
Quarter: 2025Q2

REPORT INFORMATION
  Report Type: Spontaneous
  Country: HR (occurrence: HR)
  Receive Date: 20250522
  Receipt Date: 20250522
  Transmission Date: 20250716
  Serious: Yes (Other)
  Sender: MERCK SHARP & DOHME LLC
  Company Number: HR-009507513-2286568

PATIENT
  Sex: Female
  Weight: 60 kg

DRUGS (43)
  1. PEMBROLIZUMAB [Suspect]
     Active Substance: PEMBROLIZUMAB
     Indication: Invasive breast carcinoma
     Route: 042
     Dates: start: 20240918, end: 20240918
  2. PEMBROLIZUMAB [Suspect]
     Active Substance: PEMBROLIZUMAB
     Indication: Invasive breast carcinoma
     Route: 042
     Dates: start: 20241011, end: 20241011
  3. AMLODIPINE [Concomitant]
     Active Substance: AMLODIPINE BESYLATE
     Indication: Hypertension
  4. Simp [Concomitant]
     Route: 042
     Dates: start: 20240918, end: 20240918
  5. Simp [Concomitant]
     Route: 042
     Dates: start: 20240926, end: 20240926
  6. Simp [Concomitant]
     Route: 042
     Dates: start: 20241003, end: 20241003
  7. Simp [Concomitant]
     Route: 042
     Dates: start: 20241011, end: 20241011
  8. Simp [Concomitant]
     Route: 042
     Dates: start: 20241017, end: 20241017
  9. Simp [Concomitant]
     Route: 042
     Dates: start: 20241024, end: 20241024
  10. DEXAMETHASONE [Concomitant]
     Active Substance: DEXAMETHASONE
     Dates: start: 20240918, end: 20240918
  11. DEXAMETHASONE [Concomitant]
     Active Substance: DEXAMETHASONE
     Dates: start: 20240926, end: 20240926
  12. DEXAMETHASONE [Concomitant]
     Active Substance: DEXAMETHASONE
     Dates: start: 20241003, end: 20241003
  13. DEXAMETHASONE [Concomitant]
     Active Substance: DEXAMETHASONE
     Dates: start: 20241011, end: 20241011
  14. DEXAMETHASONE [Concomitant]
     Active Substance: DEXAMETHASONE
     Dates: start: 20241017, end: 20241017
  15. DEXAMETHASONE [Concomitant]
     Active Substance: DEXAMETHASONE
     Dates: start: 20241024, end: 20241024
  16. DEXAMETHASONE [Concomitant]
     Active Substance: DEXAMETHASONE
     Dates: start: 20240918, end: 20240918
  17. DEXAMETHASONE [Concomitant]
     Active Substance: DEXAMETHASONE
     Dates: start: 20240926, end: 20240926
  18. DEXAMETHASONE [Concomitant]
     Active Substance: DEXAMETHASONE
     Dates: start: 20241003, end: 20241003
  19. DEXAMETHASONE [Concomitant]
     Active Substance: DEXAMETHASONE
     Dates: start: 20241011, end: 20241011
  20. DEXAMETHASONE [Concomitant]
     Active Substance: DEXAMETHASONE
     Dates: start: 20241017, end: 20241017
  21. DEXAMETHASONE [Concomitant]
     Active Substance: DEXAMETHASONE
     Dates: start: 20241024, end: 20241024
  22. PACLITAXEL [Concomitant]
     Active Substance: PACLITAXEL
     Dosage: 110 MG IV IN 250 ML 0.9%NACL IN 1H INFUSION, EX
     Route: 042
     Dates: start: 20240918, end: 20240918
  23. PACLITAXEL [Concomitant]
     Active Substance: PACLITAXEL
     Dosage: 110 MG IV IN 250 ML 0.9%NACL IN 1H INFUSION
     Route: 042
     Dates: start: 20240926, end: 20240926
  24. PACLITAXEL [Concomitant]
     Active Substance: PACLITAXEL
     Dosage: 110 MG IV IN 250 ML 0.9%NACL IN 1H INFUSION
     Route: 042
     Dates: start: 20241003, end: 20241003
  25. PACLITAXEL [Concomitant]
     Active Substance: PACLITAXEL
     Dosage: 110 MG IV IN 250 ML 0.9%NACL IN 1H INFUSION
     Route: 042
     Dates: start: 20241011, end: 20241011
  26. PACLITAXEL [Concomitant]
     Active Substance: PACLITAXEL
     Dosage: 110 MG IV IN 250 ML 0.9%NACL IN 1H INFUSION
     Route: 042
     Dates: start: 20241017, end: 20241017
  27. PACLITAXEL [Concomitant]
     Active Substance: PACLITAXEL
     Dosage: 110 MG IV IN 250 ML 0.9%NACL IN 1H INFUSION
     Route: 042
     Dates: start: 20241024, end: 20241024
  28. NORMABEL [Concomitant]
     Active Substance: DIAZEPAM
     Dates: start: 20240918, end: 20240918
  29. NORMABEL [Concomitant]
     Active Substance: DIAZEPAM
     Dates: start: 20240926, end: 20240926
  30. NORMABEL [Concomitant]
     Active Substance: DIAZEPAM
     Dates: start: 20241003, end: 20241003
  31. NORMABEL [Concomitant]
     Active Substance: DIAZEPAM
     Dates: start: 20241011, end: 20241011
  32. NORMABEL [Concomitant]
     Active Substance: DIAZEPAM
     Dates: start: 20241017, end: 20241017
  33. NORMABEL [Concomitant]
     Active Substance: DIAZEPAM
     Dates: start: 20241024, end: 20241024
  34. CARBOPLATIN [Concomitant]
     Active Substance: CARBOPLATIN
     Dosage: 400 MG IN 500 ML 0.9NACL/1H IV EX
     Route: 042
     Dates: start: 20240918, end: 20240918
  35. CARBOPLATIN [Concomitant]
     Active Substance: CARBOPLATIN
     Dosage: 400 MG IN 500 ML 0.9NACL/1H IV
     Route: 042
     Dates: start: 20241003, end: 20241003
  36. CARBOPLATIN [Concomitant]
     Active Substance: CARBOPLATIN
     Dosage: 400 MG IN 500 ML 0.9NACL/1H IV
     Route: 042
     Dates: start: 20241011, end: 20241011
  37. CARBOPLATIN [Concomitant]
     Active Substance: CARBOPLATIN
     Dosage: 400 MG IN 500 ML 0.9NACL/1H IV
     Route: 042
     Dates: start: 20241017, end: 20241017
  38. CARBOPLATIN [Concomitant]
     Active Substance: CARBOPLATIN
     Dosage: 400 MG IN 500 ML 0.9NACL/1H
     Route: 042
     Dates: start: 20241024, end: 20241024
  39. Akynzeo [Concomitant]
     Route: 048
     Dates: start: 20240918, end: 20240918
  40. Akynzeo [Concomitant]
     Route: 048
     Dates: start: 20241003, end: 20241003
  41. Akynzeo [Concomitant]
     Route: 048
     Dates: start: 20241011, end: 20241011
  42. Akynzeo [Concomitant]
     Route: 048
     Dates: start: 20241017, end: 20241017
  43. Akynzeo [Concomitant]
     Route: 048
     Dates: start: 20241024, end: 20241024

REACTIONS (8)
  - Nephritis [Unknown]
  - Thrombocytopenia [Unknown]
  - Neutropenia [Unknown]
  - Inappropriate schedule of product administration [Unknown]
  - Fatigue [Recovering/Resolving]
  - Pneumonia [Unknown]
  - Pneumonitis [Unknown]
  - Minimal residual disease [Unknown]

NARRATIVE: CASE EVENT DATE: 20240101
